FAERS Safety Report 15491045 (Version 1)
Quarter: 2018Q4

REPORT INFORMATION
  Report Type: Report from Study
  Country: IL (occurrence: IL)
  Receive Date: 20181012
  Receipt Date: 20181012
  Transmission Date: 20190205
  Serious: Yes (Other)
  Sender: FDA-Public Use
  Company Number: IL-BEH-2018095705

PATIENT
  Age: 13 Year
  Sex: Male

DRUGS (2)
  1. HUMAN FACTOR IX (INN) [Suspect]
     Active Substance: COAGULATION FACTOR IX HUMAN
     Indication: FACTOR IX DEFICIENCY
     Route: 065
  2. FACTOR IX RECOMBINANT (GENERIC) [Suspect]
     Active Substance: COAGULATION FACTOR IX RECOMBINANT HUMAN
     Indication: FACTOR IX DEFICIENCY
     Route: 065

REACTIONS (2)
  - Anti factor IX antibody positive [Unknown]
  - Hypersensitivity [Unknown]
